FAERS Safety Report 20701339 (Version 1)
Quarter: 2022Q2

REPORT INFORMATION
  Report Type: Spontaneous
  Country: US (occurrence: US)
  Receive Date: 20220412
  Receipt Date: 20220412
  Transmission Date: 20220721
  Serious: Yes (Hospitalization)
  Sender: FDA-Public Use
  Company Number: US-UNITED THERAPEUTICS-UNT-2022-007738

PATIENT
  Age: 71 Year
  Sex: Female

DRUGS (2)
  1. REMODULIN [Suspect]
     Active Substance: TREPROSTINIL
     Indication: Pulmonary arterial hypertension
     Dosage: UNK, CONTINUING
     Route: 058
     Dates: start: 20210205
  2. REMODULIN [Suspect]
     Active Substance: TREPROSTINIL
     Dosage: 0.0363 ?G/KG, CONTINUING
     Route: 058

REACTIONS (5)
  - Nausea [Unknown]
  - Vomiting [Unknown]
  - Migraine [Unknown]
  - Infusion site exfoliation [Unknown]
  - Infusion site extravasation [Unknown]

NARRATIVE: CASE EVENT DATE: 20220401
